FAERS Safety Report 5413593-2 (Version None)
Quarter: 2007Q3

REPORT INFORMATION
  Report Type: 
  Country: None (occurrence: None)
  Receive Date: 20070810
  Receipt Date: 20070730
  Transmission Date: 20080115
  Serious: Yes (Other)
  Sender: FDA-Public Use
  Company Number: 20070192 /

PATIENT
  Age: 70 Year
  Sex: Female

DRUGS (1)
  1. HYDROXYZINE HCL INJECTION, USP (5610-25) 50 MG/ML [Suspect]
     Indication: ELECTROLYTE SUBSTITUTION THERAPY
     Dosage: INTRAMUSCULAR
     Route: 030
     Dates: start: 20070606

REACTIONS (1)
  - INJECTION SITE CELLULITIS [None]
